FAERS Safety Report 4475775-6 (Version None)
Quarter: 2004Q4

REPORT INFORMATION
  Report Type: 
  Country: None (occurrence: None)
  Receive Date: 20041015
  Receipt Date: 20041014
  Transmission Date: 20050328
  Serious: Yes (Hospitalization)
  Sender: FDA-Public Use
  Company Number: 97

PATIENT
  Age: 57 Year
  Sex: Female

DRUGS (11)
  1. MELPHALAN [Suspect]
     Indication: MULTIPLE MYELOMA
     Dosage: 200MGM2 PER DAY
     Route: 042
     Dates: start: 20040713
  2. THALIDOMIDE [Suspect]
     Indication: MULTIPLE MYELOMA
     Route: 048
  3. BORTEZOMIB [Suspect]
     Indication: MULTIPLE MYELOMA
     Route: 065
  4. DEXAMETHASONE [Concomitant]
  5. CISPLATIN [Concomitant]
  6. ADRIAMYCIN PFS [Concomitant]
  7. CYCLOPHOSPHAMIDE [Concomitant]
  8. ETOPOSIDE [Concomitant]
  9. PENICILLIN [Concomitant]
  10. DOXYCYCLINE [Concomitant]
  11. TRIAMCINOLONE [Concomitant]

REACTIONS (4)
  - ANAPHYLACTIC REACTION [None]
  - CYTOMEGALOVIRUS ANTIGEN POSITIVE [None]
  - HYPOTENSION [None]
  - RASH [None]
